FAERS Safety Report 15213901 (Version 1)
Quarter: 2018Q3

REPORT INFORMATION
  Report Type: Spontaneous
  Country: US (occurrence: US)
  Receive Date: 20180730
  Receipt Date: 20180730
  Transmission Date: 20181010
  Serious: Yes (Other)
  Sender: FDA-Public Use
  Company Number: US-SA-2018SA206043

PATIENT

DRUGS (2)
  1. TAXOTERE [Suspect]
     Active Substance: DOCETAXEL
     Dosage: UNK
     Dates: start: 20150301, end: 20150301
  2. TAXOTERE [Suspect]
     Active Substance: DOCETAXEL
     Dosage: UNNK
     Route: 065
     Dates: start: 20141229, end: 20141229

REACTIONS (2)
  - Alopecia [Unknown]
  - Emotional distress [Unknown]
